FAERS Safety Report 7685184-4 (Version None)
Quarter: 2011Q3

REPORT INFORMATION
  Report Type: 
  Country: None (occurrence: None)
  Receive Date: 20110816
  Receipt Date: 20110812
  Transmission Date: 20111222
  Serious: Yes (Hospitalization, Other)
  Sender: FDA-Public Use
  Company Number: US-PFIZER INC-2011186335

PATIENT
  Sex: Female
  Weight: 98.4 kg

DRUGS (4)
  1. ADVAIR DISKUS 100/50 [Concomitant]
     Indication: ASTHMA
     Dosage: 150 MG, UNK
  2. LYRICA [Suspect]
     Indication: FIBROMYALGIA
     Dosage: 150 MG, 2X/DAY
     Route: 048
  3. PROVENTIL [Concomitant]
     Indication: ASTHMA
     Dosage: UNK
  4. ZOLOFT [Concomitant]
     Dosage: 75 MG, UNK

REACTIONS (1)
  - CARPAL TUNNEL DECOMPRESSION [None]
